FAERS Safety Report 6713050-7 (Version None)
Quarter: 2010Q2

REPORT INFORMATION
  Report Type: 
  Country: None (occurrence: None)
  Receive Date: 20100504
  Receipt Date: 20100422
  Transmission Date: 20101027
  Serious: Yes (Hospitalization, Other)
  Sender: FDA-Public Use
  Company Number: 2010SP004008

PATIENT
  Age: 30 Year
  Sex: Female

DRUGS (3)
  1. DESOGESTREL AND ETHINYL ESTRADIOL [Suspect]
     Indication: ORAL CONTRACEPTION
     Dosage: 1 DF;QD;PO
     Route: 048
     Dates: end: 20091120
  2. NOVYNETTE (NOVYNETTE /01542501/) [Suspect]
     Indication: ORAL CONTRACEPTION
     Dosage: 1 DF;QD;PO
     Route: 048
     Dates: end: 20091120
  3. FOLIMET [Concomitant]

REACTIONS (5)
  - DEEP VEIN THROMBOSIS [None]
  - EMBOLISM [None]
  - PELVIC VENOUS THROMBOSIS [None]
  - RHEUMATOID ARTHRITIS [None]
  - SWELLING [None]
